FAERS Safety Report 8323187-7 (Version None)
Quarter: 2012Q2

REPORT INFORMATION
  Report Type: 
  Country: None (occurrence: None)
  Receive Date: 20120430
  Receipt Date: 20120425
  Transmission Date: 20120825
  Serious: Yes (Other)
  Sender: FDA-Public Use
  Company Number: DE-B.I. PHARMACEUTICALS,INC./RIDGEFIELD-2012-DE-01014DE

PATIENT
  Sex: Male
  Weight: 89 kg

DRUGS (6)
  1. STALEWO [Concomitant]
     Indication: PARKINSON'S DISEASE
     Dosage: 100/25 MG
     Route: 048
     Dates: start: 20090101
  2. METFORMIN HCL [Concomitant]
     Indication: DIABETES MELLITUS
     Dates: start: 20111001
  3. PK-MERZ [Concomitant]
  4. PRAMIPEXOLE DIHYCHLLORIDE [Suspect]
     Indication: PARKINSON'S DISEASE
     Dosage: 2.1 MG
     Dates: start: 20100101
  5. PRAMIPEXOLE DIHYCHLLORIDE [Suspect]
     Dosage: 0.7 MG
     Dates: end: 20100101
  6. AZILECT [Concomitant]
     Indication: PARKINSON'S DISEASE
     Dosage: 1 MG
     Dates: start: 20090101

REACTIONS (2)
  - BULIMIA NERVOSA [None]
  - HYPERSEXUALITY [None]
